FAERS Safety Report 25531922 (Version 1)
Quarter: 2025Q3

REPORT INFORMATION
  Report Type: Spontaneous
  Country: US (occurrence: US)
  Receive Date: 20250709
  Receipt Date: 20250709
  Transmission Date: 20251020
  Serious: No
  Sender: HIKMA
  Company Number: US-HIKMA PHARMACEUTICALS USA INC.-US-H14001-25-02956

PATIENT
  Age: 52 Year
  Sex: Female

DRUGS (2)
  1. LIRAGLUTIDE [Suspect]
     Active Substance: LIRAGLUTIDE
     Indication: Diabetes mellitus
     Dosage: 1.2 MILLIGRAM (VICTOZA), ONCE A DAY
     Route: 030
     Dates: start: 202501
  2. GLUCOPHAGE [Concomitant]
     Active Substance: METFORMIN HYDROCHLORIDE
     Indication: Product used for unknown indication
     Dosage: METFORMIN 2 PILLS A DAY, PT IS UNSURE OF THE STRENGTH (GLUCOPHAGE)
     Route: 065

REACTIONS (1)
  - Product dose omission issue [Unknown]
